FAERS Safety Report 14577024 (Version 4)
Quarter: 2018Q2

REPORT INFORMATION
  Report Type: Report from Study
  Country: US (occurrence: US)
  Receive Date: 20180227
  Receipt Date: 20180531
  Transmission Date: 20180711
  Serious: Yes (Other)
  Sender: FDA-Public Use
  Company Number: PHEH2018US007315

PATIENT
  Sex: Female

DRUGS (1)
  1. ENTRESTO [Suspect]
     Active Substance: SACUBITRIL\VALSARTAN
     Indication: CARDIAC FAILURE CONGESTIVE
     Dosage: 2.5 DF (24MG SACUBITRIL AND 26MG VALSARTAN), BID (1 IN MORNING AND 1.5 IN EVENING)
     Route: 048
     Dates: start: 201712

REACTIONS (8)
  - Drug prescribing error [Unknown]
  - Wrong technique in product usage process [Unknown]
  - Dyspnoea [Unknown]
  - Hypotension [Unknown]
  - Pulmonary oedema [Unknown]
  - Burning sensation [Unknown]
  - Ascites [Unknown]
  - Night sweats [Unknown]
